FAERS Safety Report 23572380 (Version 2)
Quarter: 2024Q3

REPORT INFORMATION
  Report Type: Spontaneous
  Country: US (occurrence: US)
  Receive Date: 20240227
  Receipt Date: 20240822
  Transmission Date: 20241016
  Serious: No
  Sender: AVADEL CNS PHARMA
  Company Number: US-AVADEL CNS PHARMACEUTICALS, LLC-2024AVA00071

PATIENT
  Age: 47 Year
  Sex: Male
  Weight: 72.472 kg

DRUGS (5)
  1. LUMRYZ [Suspect]
     Active Substance: SODIUM OXYBATE
     Indication: Hypersomnia
     Dosage: 7.5 G, ONCE NIGHTLY AS DIRECTED
     Dates: start: 20231208
  2. ESCITALOPRAM OXALATE [Concomitant]
     Active Substance: ESCITALOPRAM OXALATE
  3. GABAPENTIN [Concomitant]
     Active Substance: GABAPENTIN
  4. PREDNISONE [Concomitant]
     Active Substance: PREDNISONE
  5. LINZESS [Concomitant]
     Active Substance: LINACLOTIDE

REACTIONS (3)
  - Insomnia [Not Recovered/Not Resolved]
  - Off label use [Not Recovered/Not Resolved]
  - Product dose omission issue [Recovered/Resolved]

NARRATIVE: CASE EVENT DATE: 20231201
